FAERS Safety Report 4316270-4 (Version None)
Quarter: 2004Q1

REPORT INFORMATION
  Report Type: 
  Country: None (occurrence: None)
  Receive Date: 20040310
  Receipt Date: 20031121
  Transmission Date: 20041129
  Serious: Yes (Other)
  Sender: FDA-Public Use
  Company Number: HQWYE297726NOV03

PATIENT
  Age: 84 Year
  Sex: Female
  Weight: 54.48 kg

DRUGS (5)
  1. PROTONIX [Suspect]
     Indication: ABDOMINAL PAIN
     Dosage: ORAL
     Route: 048
     Dates: start: 20020101
  2. NORCO [Suspect]
     Indication: PAIN
     Dosage: ^NORCO 5/235, 3 TO 4 TABLETS PER DAY^, ORAL
     Route: 048
     Dates: start: 20020301, end: 20030601
  3. XANAX [Suspect]
     Indication: ANXIETY
     Dosage: ORAL
     Route: 048
     Dates: start: 20030101
  4. MAALOX (ALUMINIUM HYDROXIDE GEL/MAGNESIUM HYDROXIDE) [Concomitant]
  5. BETOPTIC [Concomitant]

REACTIONS (2)
  - DRUG INTERACTION [None]
  - VISION BLURRED [None]
